FAERS Safety Report 9390414 (Version 2)
Quarter: 2013Q3

REPORT INFORMATION
  Report Type: Spontaneous
  Country: DE (occurrence: DE)
  Receive Date: 20130709
  Receipt Date: 20130723
  Transmission Date: 20140515
  Serious: Yes (Other)
  Sender: FDA-Public Use
  Company Number: PHHY2013DE071721

PATIENT
  Age: 84 Year
  Sex: Male

DRUGS (1)
  1. LEPONEX [Suspect]
     Indication: PSYCHOTIC DISORDER
     Dosage: UNK
     Dates: start: 201306

REACTIONS (3)
  - Troponin T increased [Recovered/Resolved]
  - Pericardial disease [Recovered/Resolved]
  - Eosinophilia [Unknown]
